FAERS Safety Report 15097407 (Version 1)
Quarter: 2018Q2

REPORT INFORMATION
  Report Type: Spontaneous
  Country: US (occurrence: US)
  Receive Date: 20180610
  Receipt Date: 20180610
  Transmission Date: 20180711
  Serious: Yes (Other)
  Sender: FDA-Public Use
  Company Number: None

PATIENT
  Age: 64 Year
  Sex: Female
  Weight: 60.75 kg

DRUGS (9)
  1. LUMIGAN [Concomitant]
     Active Substance: BIMATOPROST
  2. RHOPRESSA [Suspect]
     Active Substance: NETARSUDIL MESYLATE
     Indication: GLAUCOMA
     Dosage: ?          QUANTITY:1 DROP(S);?
     Route: 047
     Dates: start: 20180607, end: 20180607
  3. VITAMIN D3 [Suspect]
     Active Substance: CHOLECALCIFEROL
  4. VITAMIN B [Concomitant]
     Active Substance: VITAMIN B
  5. AZOPT [Concomitant]
     Active Substance: BRINZOLAMIDE
  6. TIMOLOL. [Concomitant]
     Active Substance: TIMOLOL
  7. EYE DROPS [Concomitant]
     Active Substance: UNSPECIFIED INGREDIENT
  8. MULTI-VITA,OMS 50+ [Concomitant]
  9. FISH OIL [Suspect]
     Active Substance: FISH OIL

REACTIONS (8)
  - Visual impairment [None]
  - Vision blurred [None]
  - Conjunctival hyperaemia [None]
  - Feeling abnormal [None]
  - Diplopia [None]
  - Eye irritation [None]
  - Ocular hyperaemia [None]
  - Lacrimation increased [None]

NARRATIVE: CASE EVENT DATE: 20180607
